FAERS Safety Report 16781563 (Version 1)
Quarter: 2019Q3

REPORT INFORMATION
  Report Type: Spontaneous
  Country: PL (occurrence: PL)
  Receive Date: 20190906
  Receipt Date: 20190906
  Transmission Date: 20191005
  Serious: Yes (Other)
  Sender: FDA-Public Use
  Company Number: PL-JNJFOC-20190840190

PATIENT
  Age: 30 Year
  Sex: Male

DRUGS (1)
  1. TOPAMAX [Suspect]
     Active Substance: TOPIRAMATE
     Indication: EPILEPSY
     Route: 065

REACTIONS (7)
  - Sluggishness [Unknown]
  - Derealisation [Unknown]
  - Anxiety [Unknown]
  - Hallucination [Unknown]
  - Altered state of consciousness [Unknown]
  - Seizure cluster [Unknown]
  - Speech disorder [Unknown]

NARRATIVE: CASE EVENT DATE: 20150418
